FAERS Safety Report 6786908-0 (Version None)
Quarter: 2010Q2

REPORT INFORMATION
  Report Type: 
  Country: None (occurrence: None)
  Receive Date: 20100621
  Receipt Date: 20100607
  Transmission Date: 20101027
  Serious: Yes (Hospitalization)
  Sender: FDA-Public Use
  Company Number: 1000013949

PATIENT
  Age: 81 Year
  Sex: Male

DRUGS (1)
  1. MEMANTINE HCL [Suspect]
     Indication: DEMENTIA ALZHEIMER'S TYPE
     Dosage: 20 MG (20 MG, 1 IN 1 D), ORAL
     Route: 048
     Dates: start: 20080803, end: 20100507

REACTIONS (3)
  - ARTERIOSCLEROSIS OBLITERANS [None]
  - BLOOD CHOLESTEROL INCREASED [None]
  - POOR PERIPHERAL CIRCULATION [None]
